FAERS Safety Report 5447531-3 (Version None)
Quarter: 2007Q3

REPORT INFORMATION
  Report Type: 
  Country: None (occurrence: None)
  Receive Date: 20070910
  Receipt Date: 20070905
  Transmission Date: 20080115
  Serious: Yes (Other)
  Sender: FDA-Public Use
  Company Number: B0486200A

PATIENT
  Age: 49 Year
  Sex: Male

DRUGS (6)
  1. HEPSERA [Suspect]
     Dosage: 10MG PER DAY
     Route: 048
     Dates: start: 20030701
  2. ZEFFIX [Suspect]
     Dosage: 100MG PER DAY
     Route: 048
     Dates: start: 20010101
  3. DEPAKENE [Concomitant]
     Indication: EPILEPSY
     Route: 048
  4. PROPRANOLOL HYDROCHLORIDE [Concomitant]
     Dosage: 80MG PER DAY
     Route: 048
  5. FOSAMAX [Concomitant]
     Dates: start: 20070401
  6. PHOSPHORE [Concomitant]
     Dates: start: 20070501

REACTIONS (3)
  - CREATININE RENAL CLEARANCE DECREASED [None]
  - HYPOPHOSPHATAEMIA [None]
  - PATHOLOGICAL FRACTURE [None]
